FAERS Safety Report 9132996 (Version 1)
Quarter: 2013Q1

REPORT INFORMATION
  Report Type: Spontaneous
  Country: US (occurrence: US)
  Receive Date: 20130116
  Receipt Date: 20130116
  Transmission Date: 20140127
  Serious: Yes (Death)
  Sender: FDA-Public Use
  Company Number: US-ROXANE LABORATORIES, INC.-2013-RO-00055RO

PATIENT
  Age: 32 Year
  Sex: Male

DRUGS (9)
  1. DIAZEPAM [Suspect]
  2. OXYMORPHONE HYDROCHLORIDE [Suspect]
  3. KEPPRA [Suspect]
  4. MIRTAZAPINE [Suspect]
  5. OXAZEPAM [Suspect]
  6. OXYCODONE [Suspect]
  7. PREGABALIN [Suspect]
  8. TEMAZEPAM [Suspect]
  9. TRAZODONE [Suspect]

REACTIONS (2)
  - Accidental overdose [Fatal]
  - Brain injury [Fatal]
